FAERS Safety Report 5849854-2 (Version None)
Quarter: 2008Q3

REPORT INFORMATION
  Report Type: 
  Country: None (occurrence: None)
  Receive Date: 20080819
  Receipt Date: 20080813
  Transmission Date: 20090109
  Serious: Yes (Other)
  Sender: FDA-Public Use
  Company Number: IE-ASTRAZENECA-2008GB01555

PATIENT
  Sex: Female

DRUGS (2)
  1. SEROQUEL XR [Suspect]
     Dosage: 300 MG
     Route: 048
  2. LITHIUM CARBONATE [Concomitant]

REACTIONS (3)
  - APHASIA [None]
  - COORDINATION ABNORMAL [None]
  - MEMORY IMPAIRMENT [None]
